FAERS Safety Report 4788722-4 (Version None)
Quarter: 2005Q4

REPORT INFORMATION
  Report Type: 
  Country: None (occurrence: None)
  Receive Date: 20051005
  Receipt Date: 20050915
  Transmission Date: 20060501
  Serious: Yes (Hospitalization)
  Sender: FDA-Public Use
  Company Number: JP-ROCHE-419555

PATIENT
  Age: 68 Year
  Sex: Female

DRUGS (1)
  1. TAMIFLU [Suspect]
     Indication: DRUG USE FOR UNKNOWN INDICATION
     Route: 065
     Dates: start: 20050415

REACTIONS (6)
  - BLOOD PRESSURE DECREASED [None]
  - GASTRIC ULCER [None]
  - LARYNGITIS [None]
  - NEPHRITIS INTERSTITIAL [None]
  - OEDEMA MOUTH [None]
  - RASH [None]
